FAERS Safety Report 16702229 (Version 1)
Quarter: 2019Q3

REPORT INFORMATION
  Report Type: Spontaneous
  Country: PR (occurrence: PR)
  Receive Date: 20190814
  Receipt Date: 20190814
  Transmission Date: 20191004
  Serious: No
  Sender: FDA-Public Use
  Company Number: PR-PFIZER INC-2019345468

PATIENT
  Age: 86 Year
  Sex: Female
  Weight: 90.7 kg

DRUGS (1)
  1. FLECTOR [Suspect]
     Active Substance: DICLOFENAC EPOLAMINE
     Indication: PAIN
     Dosage: UNK

REACTIONS (3)
  - Fall [Unknown]
  - Dizziness [Unknown]
  - Disease recurrence [Unknown]
